FAERS Safety Report 10510563 (Version 1)
Quarter: 2014Q4

REPORT INFORMATION
  Report Type: Spontaneous
  Country: US (occurrence: None)
  Receive Date: 20141009
  Receipt Date: 20141009
  Transmission Date: 20150528
  Serious: Yes (Hospitalization)
  Sender: FDA-Public Use
  Company Number: None

PATIENT
  Age: 63 Year
  Sex: Male

DRUGS (1)
  1. WARFARIN [Suspect]
     Active Substance: WARFARIN
     Dosage: MG, PO
     Route: 048
     Dates: start: 20140822

REACTIONS (4)
  - Gastric haemorrhage [None]
  - Delirium [None]
  - Intentional overdose [None]
  - International normalised ratio increased [None]

NARRATIVE: CASE EVENT DATE: 20140822
